FAERS Safety Report 5104929-0 (Version None)
Quarter: 2006Q3

REPORT INFORMATION
  Report Type: 
  Country: None (occurrence: None)
  Receive Date: 20060908
  Receipt Date: 20060908
  Transmission Date: 20061208
  Serious: Yes (Hospitalization)
  Sender: FDA-Public Use
  Company Number: None

PATIENT
  Sex: Male
  Weight: 76.2 kg

DRUGS (2)
  1. GLEEVEC [Suspect]
     Indication: CHRONIC MYELOID LEUKAEMIA
     Dosage: 400 MG PO QD
     Route: 048
     Dates: start: 20060728, end: 20060811
  2. HYDROXYUREA [Concomitant]

REACTIONS (4)
  - FEBRILE NEUTROPENIA [None]
  - INCORRECT DOSE ADMINISTERED [None]
  - PANCYTOPENIA [None]
  - PHARYNGOLARYNGEAL ABSCESS [None]
